FAERS Safety Report 25512485 (Version 3)
Quarter: 2025Q4

REPORT INFORMATION
  Report Type: Report from Study
  Country: US (occurrence: US)
  Receive Date: 20250703
  Receipt Date: 20251217
  Transmission Date: 20260117
  Serious: Yes (Other)
  Sender: ALEXION PHARMACEUTICALS
  Company Number: US-AstraZeneca-CH-00901982A

PATIENT
  Sex: Female

DRUGS (2)
  1. RAVULIZUMAB [Suspect]
     Active Substance: RAVULIZUMAB
     Dosage: UNK
     Route: 065
  2. SOLIRIS [Suspect]
     Active Substance: ECULIZUMAB
     Dosage: UNK
     Route: 065

REACTIONS (3)
  - Macular degeneration [Unknown]
  - Visual impairment [Unknown]
  - Photophobia [Unknown]

NARRATIVE: CASE EVENT DATE: 20230101
